FAERS Safety Report 5884100-5 (Version None)
Quarter: 2008Q3

REPORT INFORMATION
  Report Type: 
  Country: None (occurrence: None)
  Receive Date: 20080910
  Receipt Date: 20080825
  Transmission Date: 20090109
  Serious: Yes (Hospitalization, Other)
  Sender: FDA-Public Use
  Company Number: 002#8#2008-00647

PATIENT
  Age: 67 Year
  Sex: Male

DRUGS (4)
  1. OMEPRAZOLE [Suspect]
     Indication: GASTROOESOPHAGEAL REFLUX DISEASE
  2. CILAZAPRIL [Concomitant]
  3. METOPROLOL TARTRATE [Concomitant]
  4. ALLOPURINOL [Concomitant]

REACTIONS (5)
  - CONVULSION [None]
  - HYPOCALCAEMIA [None]
  - HYPOMAGNESAEMIA [None]
  - MALABSORPTION [None]
  - RENAL DISORDER [None]
